FAERS Safety Report 13746010 (Version 1)
Quarter: 2017Q3

REPORT INFORMATION
  Report Type: Spontaneous
  Country: US (occurrence: US)
  Receive Date: 20170711
  Receipt Date: 20170711
  Transmission Date: 20171127
  Serious: Yes (Hospitalization)
  Sender: FDA-Public Use
  Company Number: None

PATIENT
  Age: 68 Year
  Sex: Male
  Weight: 76.9 kg

DRUGS (5)
  1. COMPAZINE [Concomitant]
     Active Substance: PROCHLORPERAZINE MALEATE
  2. VALACYCLOVIR [Concomitant]
     Active Substance: VALACYCLOVIR HYDROCHLORIDE
  3. CIPROFLOXACIN. [Concomitant]
     Active Substance: CIPROFLOXACIN
  4. VORICONAZOLE. [Concomitant]
     Active Substance: VORICONAZOLE
  5. DECITABINE. [Suspect]
     Active Substance: DECITABINE
     Indication: MYELODYSPLASTIC SYNDROME
     Dosage: 39.6 MG IV 01-010, Q4 WK
     Route: 042
     Dates: start: 20170418, end: 20170628

REACTIONS (4)
  - Neutropenia [None]
  - Pyrexia [None]
  - Pneumonia [None]
  - Arthritis bacterial [None]

NARRATIVE: CASE EVENT DATE: 20170710
